FAERS Safety Report 22617745 (Version 1)
Quarter: 2023Q2

REPORT INFORMATION
  Report Type: Spontaneous
  Country: JP (occurrence: JP)
  Receive Date: 20230620
  Receipt Date: 20230620
  Transmission Date: 20230722
  Serious: No
  Sender: FDA-Public Use
  Company Number: JP-PFM-2022-06185

PATIENT
  Age: 23 Day
  Sex: Male

DRUGS (6)
  1. PROPRANOLOL [Suspect]
     Active Substance: PROPRANOLOL HYDROCHLORIDE
     Indication: Infantile haemangioma
     Dosage: 1.0 MG/KG/DAY
     Route: 065
  2. PROPRANOLOL [Suspect]
     Active Substance: PROPRANOLOL HYDROCHLORIDE
     Dosage: 2.0 MG/KG/DAY
     Route: 065
  3. LEVOTHYROXINE [Suspect]
     Active Substance: LEVOTHYROXINE
     Indication: Hypothyroidism
     Dosage: 30 ?G/DAY, (7.5 ?G/KG/DAY)
     Route: 065
  4. LIOTHYRONINE [Suspect]
     Active Substance: LIOTHYRONINE
     Indication: Hypothyroidism
     Dosage: 5 ?G/DAY; 1.2 ?G/KG/DAY
     Route: 065
  5. LIOTHYRONINE [Suspect]
     Active Substance: LIOTHYRONINE
     Dosage: 15 ?G/DAY (3.4 ?G/KG/DAY)
     Route: 065
  6. LIOTHYRONINE [Suspect]
     Active Substance: LIOTHYRONINE
     Dosage: 5 ?G/DAY (1.1 ?G/KG/DAY), THREE DIVIDED DOSES PER DAY
     Route: 065

REACTIONS (2)
  - Product administered to patient of inappropriate age [Unknown]
  - Off label use [Unknown]
